FAERS Safety Report 7168359-2 (Version None)
Quarter: 2010Q4

REPORT INFORMATION
  Report Type: 
  Country: None (occurrence: None)
  Receive Date: 20101216
  Receipt Date: 20101207
  Transmission Date: 20110411
  Serious: Yes (Other)
  Sender: FDA-Public Use
  Company Number: GT-ABBOTT-10P-069-0690897-00

PATIENT
  Sex: Female

DRUGS (4)
  1. ALUVIA TABLETS 200MG/50MG [Suspect]
     Indication: PROPHYLAXIS
     Dosage: 400/100MG (GIVEN AS TWO 200/50 MG TABLETS TWICE DAILY)
     Route: 048
     Dates: start: 20080411
  2. ALUVIA TABLETS 200MG/50MG [Suspect]
     Indication: HUMAN IMMUNODEFICIENCY VIRUS TRANSMISSION
  3. LAMIVUDINE + ZIDOVUDINE [Concomitant]
     Indication: PROPHYLAXIS
     Dosage: 600MG+ 300MG
     Route: 048
     Dates: start: 20080411, end: 20080508
  4. LAMIVUDINE + ZIDOVUDINE [Concomitant]
     Indication: HUMAN IMMUNODEFICIENCY VIRUS TRANSMISSION

REACTIONS (2)
  - ABORTION INCOMPLETE [None]
  - DRUG EXPOSURE DURING PREGNANCY [None]
